FAERS Safety Report 20642520 (Version 1)
Quarter: 2022Q1

REPORT INFORMATION
  Report Type: Spontaneous
  Country: US (occurrence: None)
  Receive Date: 20220325
  Receipt Date: 20220325
  Transmission Date: 20220423
  Serious: Yes (Hospitalization)
  Sender: FDA-Public Use
  Company Number: None

PATIENT
  Sex: Female

DRUGS (8)
  1. AMBRISENTAN [Suspect]
     Active Substance: AMBRISENTAN
     Indication: Pulmonary arterial hypertension
     Dosage: FREQUENCY : DAILY;?TAKE 1 TABLET (10 MG TOTAL) BY MOUTH DAILY.
     Route: 048
     Dates: start: 20200401
  2. CALCIUM 600 TAB +D [Concomitant]
  3. CENTRUM TAB SILVER [Concomitant]
  4. D3 CAP 1000UNIT [Concomitant]
  5. DEXAMETHASONE [Concomitant]
     Active Substance: DEXAMETHASONE
  6. UPTRAVI TAB 1000MCG [Concomitant]
  7. VYNDAQEL CAP 20MG [Concomitant]
  8. COENZYME Q10 [Concomitant]
     Active Substance: DIETARY SUPPLEMENT\UBIDECARENONE

REACTIONS (2)
  - COVID-19 [None]
  - Therapy interrupted [None]
